APPROVED DRUG PRODUCT: LABETALOL HYDROCHLORIDE
Active Ingredient: LABETALOL HYDROCHLORIDE
Strength: 5MG/ML
Dosage Form/Route: INJECTABLE;INJECTION
Application: A075240 | Product #001 | TE Code: AP
Applicant: HOSPIRA INC
Approved: Nov 29, 1999 | RLD: No | RS: Yes | Type: RX